FAERS Safety Report 21281295 (Version 1)
Quarter: 2022Q3

REPORT INFORMATION
  Report Type: Spontaneous
  Country: US (occurrence: None)
  Receive Date: 20220831
  Receipt Date: 20220831
  Transmission Date: 20221026
  Serious: No
  Sender: FDA-Public Use
  Company Number: None

PATIENT
  Age: 53 Year
  Sex: Female

DRUGS (1)
  1. COSENTYX [Suspect]
     Active Substance: SECUKINUMAB
     Indication: Psoriasis
     Dosage: INJECT 150MG (1 PEN) SUBCUTANEOUSLY EVERY 4 WEEKS AS DIRECTED?
     Route: 058
     Dates: start: 202204

REACTIONS (1)
  - Skin infection [None]
